FAERS Safety Report 11398659 (Version 1)
Quarter: 2015Q3

REPORT INFORMATION
  Report Type: Report from Study
  Country: US (occurrence: US)
  Receive Date: 20150820
  Receipt Date: 20150820
  Transmission Date: 20151125
  Serious: Yes (Hospitalization, Other)
  Sender: FDA-Public Use
  Company Number: PHEH2015US015560

PATIENT
  Sex: Female

DRUGS (1)
  1. CLOZARIL [Suspect]
     Active Substance: CLOZAPINE
     Indication: PRODUCT USED FOR UNKNOWN INDICATION
     Dosage: 450 MG, UNK
     Route: 065

REACTIONS (6)
  - Chest pain [Unknown]
  - Seizure [Unknown]
  - Fall [Unknown]
  - Confusional state [Unknown]
  - Intentional self-injury [Unknown]
  - Headache [Unknown]
